FAERS Safety Report 5341169-4 (Version None)
Quarter: 2007Q2

REPORT INFORMATION
  Report Type: 
  Country: None (occurrence: None)
  Receive Date: 20070530
  Receipt Date: 20070517
  Transmission Date: 20071010
  Serious: Yes (Hospitalization)
  Sender: FDA-Public Use
  Company Number: 07-001113

PATIENT
  Age: 38 Year
  Sex: Female
  Weight: 57.6 kg

DRUGS (4)
  1. FEMRING [Suspect]
     Indication: HOT FLUSH
     Dosage: QD, VAGINAL
     Route: 067
     Dates: start: 20050101, end: 20070301
  2. EFFEXOR /01233801/(VENLAFAXINE0 [Concomitant]
  3. NEXIUM /01479302/ (ESOMEPRAZOLE MAGNESIUM) [Concomitant]
  4. ZYRTEC [Concomitant]

REACTIONS (3)
  - ANGIOEDEMA [None]
  - CHEST PAIN [None]
  - TACHYCARDIA [None]
